FAERS Safety Report 4937431-7 (Version None)
Quarter: 2006Q1

REPORT INFORMATION
  Report Type: 
  Country: None (occurrence: None)
  Receive Date: 20060302
  Receipt Date: 20060207
  Transmission Date: 20060701
  Serious: Yes (Hospitalization)
  Sender: FDA-Public Use
  Company Number: JP200601004358

PATIENT
  Age: 54 Year
  Sex: Male
  Weight: 58 kg

DRUGS (4)
  1. HUMALOG [Suspect]
     Indication: DIABETES MELLITUS NON-INSULIN-DEPENDENT
     Dosage: 2 U, 2/D, SUBCUTANEOUS; 2 U, 3/D, SUBCUTANEOUS
     Route: 058
     Dates: start: 20051213, end: 20051213
  2. HUMALOG [Suspect]
     Indication: DIABETES MELLITUS NON-INSULIN-DEPENDENT
     Dosage: 2 U, 2/D, SUBCUTANEOUS; 2 U, 3/D, SUBCUTANEOUS
     Route: 058
     Dates: start: 20051214, end: 20051220
  3. HUMALOG PEN [Suspect]
     Indication: DIABETES MELLITUS NON-INSULIN-DEPENDENT
     Dosage: 8 U, DAILY (1/D), SUBCUTANEOUS
     Route: 058
     Dates: start: 20051221, end: 20060121
  4. HUMALOG PEN (HUMALOG PEN) PEN, DISPOSABLE [Concomitant]

REACTIONS (7)
  - ALANINE AMINOTRANSFERASE INCREASED [None]
  - ASPARTATE AMINOTRANSFERASE INCREASED [None]
  - BLOOD ALKALINE PHOSPHATASE INCREASED [None]
  - BLOOD IMMUNOGLOBULIN E INCREASED [None]
  - BLOOD LACTATE DEHYDROGENASE INCREASED [None]
  - HEPATIC FUNCTION ABNORMAL [None]
  - LABORATORY TEST ABNORMAL [None]
